FAERS Safety Report 11760456 (Version 3)
Quarter: 2016Q1

REPORT INFORMATION
  Report Type: Report from Study
  Country: BR (occurrence: BR)
  Receive Date: 20151120
  Receipt Date: 20160303
  Transmission Date: 20160525
  Serious: Yes (Other)
  Sender: FDA-Public Use
  Company Number: BR-ABBVIE-15P-020-1504954-00

PATIENT
  Sex: Female
  Weight: 73 kg

DRUGS (7)
  1. LIPIDIL [Suspect]
     Active Substance: FENOFIBRATE
     Indication: BLOOD CHOLESTEROL INCREASED
     Route: 048
     Dates: start: 2013
  2. DIOVAN [Concomitant]
     Active Substance: VALSARTAN
     Indication: HYPERTENSION
     Route: 048
     Dates: start: 201509
  3. LANTUS [Concomitant]
     Active Substance: INSULIN GLARGINE
     Indication: DIABETES MELLITUS
     Dosage: FREQUENCY:IN THE MORNING, BEFORE BREAKFAST
     Route: 058
     Dates: start: 2013
  4. PSYLLIUM [Concomitant]
     Active Substance: PLANTAGO SEED
     Indication: CONSTIPATION
     Dosage: THE SACHET IS DILUTED WITH WATER; DAILY DOSE: 2 SACHET
     Route: 048
     Dates: start: 201509
  5. HUMALOG [Concomitant]
     Active Substance: INSULIN LISPRO
     Indication: DIABETES MELLITUS
     Dosage: UNIT DOSE: 15 IU, 30 IU AND 25 IU, RESPECTIVELY.
     Route: 058
     Dates: start: 2013
  6. BENESTARE [Concomitant]
     Indication: CONSTIPATION
     Route: 048
     Dates: start: 201509
  7. VENALOT [Concomitant]
     Active Substance: COUMARIN\TROXERUTIN
     Indication: VASODILATATION
     Route: 050
     Dates: start: 201509

REACTIONS (3)
  - Peripheral vascular disorder [Recovered/Resolved]
  - Bone pain [Not Recovered/Not Resolved]
  - Anaemia [Unknown]
